FAERS Safety Report 11515150 (Version 2)
Quarter: 2016Q2

REPORT INFORMATION
  Report Type: Spontaneous
  Country: JP (occurrence: JP)
  Receive Date: 20150916
  Receipt Date: 20160429
  Transmission Date: 20160815
  Serious: Yes (Hospitalization)
  Sender: FDA-Public Use
  Company Number: JP-JNJFOC-20150909216

PATIENT
  Age: 44 Year
  Sex: Female
  Weight: 42 kg

DRUGS (48)
  1. STELARA [Suspect]
     Active Substance: USTEKINUMAB
     Indication: PSORIASIS
     Route: 058
     Dates: start: 20150312, end: 20150312
  2. STELARA [Suspect]
     Active Substance: USTEKINUMAB
     Indication: PSORIASIS
     Route: 058
     Dates: start: 20141211, end: 20141211
  3. STELARA [Suspect]
     Active Substance: USTEKINUMAB
     Indication: PSORIASIS
     Route: 058
  4. PRIMPERAN [Concomitant]
     Active Substance: METOCLOPRAMIDE HYDROCHLORIDE
     Route: 048
     Dates: start: 20150724
  5. NEORAL [Concomitant]
     Active Substance: CYCLOSPORINE
     Route: 048
     Dates: start: 20141211, end: 20150114
  6. GRANISETRON HYDROCHLORIDE. [Concomitant]
     Active Substance: GRANISETRON HYDROCHLORIDE
     Route: 041
     Dates: start: 20151001, end: 20151001
  7. ANTEBATE [Concomitant]
     Active Substance: BETAMETHASONE DIPROPIONATE
     Route: 061
     Dates: start: 20141113
  8. CARBOPLATIN. [Concomitant]
     Active Substance: CARBOPLATIN
     Route: 041
     Dates: start: 20151001, end: 20151001
  9. CARBOPLATIN. [Concomitant]
     Active Substance: CARBOPLATIN
     Route: 041
     Dates: start: 20151001, end: 20151001
  10. GRANISETRON HYDROCHLORIDE. [Concomitant]
     Active Substance: GRANISETRON HYDROCHLORIDE
     Route: 041
     Dates: start: 20150723, end: 20150723
  11. GLUCOSE [Concomitant]
     Active Substance: DEXTROSE
     Route: 041
     Dates: start: 20150723, end: 20150723
  12. STELARA [Suspect]
     Active Substance: USTEKINUMAB
     Indication: PSORIASIS
     Route: 058
     Dates: start: 20141113, end: 20141113
  13. NEORAL [Concomitant]
     Active Substance: CYCLOSPORINE
     Route: 048
     Dates: start: 20141113, end: 20141210
  14. BUFFERIN [Concomitant]
     Active Substance: ASPIRIN
     Route: 048
     Dates: start: 20141113, end: 20151209
  15. MAGLAX [Concomitant]
     Active Substance: MAGNESIUM OXIDE
     Route: 048
     Dates: start: 20150724, end: 20150822
  16. ANFLAVATE [Concomitant]
     Active Substance: BETAMETHASONE BUTYRATE PROPIONATE
     Route: 061
     Dates: start: 20150910
  17. VIDARABINE [Concomitant]
     Active Substance: VIDARABINE
     Route: 061
     Dates: start: 20141211
  18. CARBOPLATIN. [Concomitant]
     Active Substance: CARBOPLATIN
     Route: 041
     Dates: start: 20150723, end: 20150723
  19. ISOTONIC SODIUM CHLORIDE SOLUTION [Concomitant]
     Active Substance: SODIUM CHLORIDE
     Route: 041
     Dates: start: 20150903, end: 20150903
  20. KINDAVATE [Concomitant]
     Route: 061
     Dates: start: 20150730
  21. PREDONINE [Concomitant]
     Active Substance: PREDNISOLONE\PREDNISOLONE ACETATE\PREDNISOLONE SODIUM SUCCINATE
     Route: 048
     Dates: start: 20141113, end: 20151209
  22. SODIUM GUALENATE HYDRATE [Concomitant]
     Active Substance: SODIUM GUALENATE MONOHYDRATE
     Route: 048
     Dates: start: 20141113, end: 20151209
  23. CARBOPLATIN. [Concomitant]
     Active Substance: CARBOPLATIN
     Route: 041
     Dates: start: 20150723, end: 20150723
  24. ISOTONIC SODIUM CHLORIDE SOLUTION [Concomitant]
     Active Substance: SODIUM CHLORIDE
     Route: 041
     Dates: start: 20150723, end: 20150723
  25. STELARA [Suspect]
     Active Substance: USTEKINUMAB
     Indication: PSORIASIS
     Route: 058
     Dates: start: 20150611, end: 20150611
  26. ANTEBATE [Concomitant]
     Active Substance: BETAMETHASONE DIPROPIONATE
     Route: 061
     Dates: start: 20141113
  27. WARKMIN [Concomitant]
     Active Substance: ALFACALCIDOL
     Route: 048
     Dates: start: 20141113, end: 20151209
  28. CARBOPLATIN. [Concomitant]
     Active Substance: CARBOPLATIN
     Route: 041
     Dates: start: 20150903, end: 20150903
  29. GRANISETRON HYDROCHLORIDE. [Concomitant]
     Active Substance: GRANISETRON HYDROCHLORIDE
     Route: 041
     Dates: start: 20150903, end: 20150903
  30. ACETATED RINGER [Concomitant]
     Route: 041
     Dates: start: 20151001, end: 20151001
  31. STELARA [Suspect]
     Active Substance: USTEKINUMAB
     Indication: PSORIASIS
     Route: 058
     Dates: start: 20160310, end: 20160310
  32. DIPHENHYDRAMINE HYDROCHLORIDE. [Concomitant]
     Active Substance: DIPHENHYDRAMINE HYDROCHLORIDE
     Route: 048
     Dates: start: 20150722, end: 20150722
  33. AZULENE-GLUTAMINE [Concomitant]
     Route: 048
     Dates: start: 20141113, end: 20151209
  34. CARBOPLATIN. [Concomitant]
     Active Substance: CARBOPLATIN
     Route: 041
     Dates: start: 20150903, end: 20150903
  35. FAMOTIDINE. [Concomitant]
     Active Substance: FAMOTIDINE
     Route: 041
     Dates: start: 20150903, end: 20150903
  36. ISOTONIC SODIUM CHLORIDE SOLUTION [Concomitant]
     Active Substance: SODIUM CHLORIDE
     Route: 041
     Dates: start: 20151001, end: 20151001
  37. GLUCOSE [Concomitant]
     Active Substance: DEXTROSE
     Route: 041
     Dates: start: 20151001, end: 20151001
  38. ACETATED RINGER [Concomitant]
     Route: 041
     Dates: start: 20150723, end: 20150723
  39. OXAROL [Concomitant]
     Active Substance: MAXACALCITOL
     Route: 061
     Dates: start: 20141113
  40. OXAROL [Concomitant]
     Active Substance: MAXACALCITOL
     Route: 061
     Dates: start: 20141113
  41. L GLUTAMINE [Concomitant]
     Active Substance: GLUTAMINE
     Route: 048
     Dates: start: 20141113, end: 20151209
  42. ISOTONIC SODIUM CHLORIDE SOLUTION [Concomitant]
     Active Substance: SODIUM CHLORIDE
     Route: 041
     Dates: start: 20150812, end: 20150812
  43. STELARA [Suspect]
     Active Substance: USTEKINUMAB
     Indication: PSORIASIS
     Route: 058
     Dates: start: 20151210, end: 20151210
  44. CICLOSPORIN [Concomitant]
     Active Substance: CYCLOSPORINE
     Indication: PSORIASIS
     Route: 065
     Dates: start: 20141113, end: 20150114
  45. ISONIAZID. [Concomitant]
     Active Substance: ISONIAZID
     Route: 048
     Dates: start: 20141113, end: 20151209
  46. DEXART [Concomitant]
     Active Substance: DEXAMETHASONE SODIUM PHOSPHATE
     Route: 041
     Dates: start: 20150903, end: 20150903
  47. ISOTONIC SODIUM CHLORIDE SOLUTION [Concomitant]
     Active Substance: SODIUM CHLORIDE
     Route: 041
     Dates: start: 20150903, end: 20150903
  48. GLUCOSE [Concomitant]
     Active Substance: DEXTROSE
     Route: 041
     Dates: start: 20150903, end: 20150903

REACTIONS (1)
  - Cervix carcinoma recurrent [Recovered/Resolved]

NARRATIVE: CASE EVENT DATE: 20150609
